FAERS Safety Report 22910786 (Version 6)
Quarter: 2023Q4

REPORT INFORMATION
  Report Type: Spontaneous
  Country: US (occurrence: US)
  Receive Date: 20230906
  Receipt Date: 20231020
  Transmission Date: 20240110
  Serious: No
  Sender: FDA-Public Use
  Company Number: US-GILEAD-2023-0642339

PATIENT
  Age: 63 Year
  Sex: Male
  Weight: 72.2 kg

DRUGS (7)
  1. VEMLIDY [Suspect]
     Active Substance: TENOFOVIR ALAFENAMIDE FUMARATE
     Indication: Hepatitis D
     Dosage: UNK
     Route: 065
     Dates: start: 20220924
  2. VEMLIDY [Suspect]
     Active Substance: TENOFOVIR ALAFENAMIDE FUMARATE
     Indication: Hepatitis B
  3. EMTRIVA [Suspect]
     Active Substance: EMTRICITABINE
     Indication: Hepatitis B
     Dosage: UNK
     Route: 065
     Dates: start: 20230126
  4. EMTRIVA [Suspect]
     Active Substance: EMTRICITABINE
     Indication: Immunosuppression
  5. TACROLIMUS [Concomitant]
     Active Substance: TACROLIMUS
  6. CELLCEPT [Concomitant]
     Active Substance: MYCOPHENOLATE MOFETIL
  7. PREDNISONE [Concomitant]
     Active Substance: PREDNISONE

REACTIONS (1)
  - Off label use [Unknown]
